FAERS Safety Report 9774990 (Version 1)
Quarter: 2013Q4

REPORT INFORMATION
  Report Type: Spontaneous
  Country: US (occurrence: US)
  Receive Date: 20131220
  Receipt Date: 20131220
  Transmission Date: 20140711
  Serious: No
  Sender: FDA-Public Use
  Company Number: US-GLAXOSMITHKLINE-A1032655A

PATIENT
  Age: 86 Year
  Sex: Male

DRUGS (14)
  1. AVODART [Suspect]
     Indication: BENIGN PROSTATIC HYPERPLASIA
     Dosage: .5MG PER DAY
     Route: 048
     Dates: start: 200703, end: 20130305
  2. ATIVAN [Concomitant]
  3. ALLOPURINOL [Concomitant]
  4. SIMVASTATIN [Concomitant]
  5. HYDROCHLOROTHIAZIDE [Concomitant]
  6. IRON [Concomitant]
  7. AMLODIPINE [Concomitant]
  8. VITAMIN C [Concomitant]
  9. VITAMIN D3 [Concomitant]
  10. FISH OIL [Concomitant]
  11. LUTEIN [Concomitant]
  12. VITAMIN E [Concomitant]
  13. TYLENOL EXTRA STRENGTH [Concomitant]
  14. LOSARTAN [Concomitant]

REACTIONS (4)
  - Gynaecomastia [Unknown]
  - Breast mass [Unknown]
  - Nipple pain [Unknown]
  - Nipple pain [Unknown]
